FAERS Safety Report 19609071 (Version 5)
Quarter: 2021Q4

REPORT INFORMATION
  Report Type: Report from Study
  Country: US (occurrence: None)
  Receive Date: 20210726
  Receipt Date: 20211207
  Transmission Date: 20220303
  Serious: Yes (Other)
  Sender: FDA-Public Use
  Company Number: US-MERCK HEALTHCARE KGAA-9252872

PATIENT
  Age: 50 Year
  Sex: Female

DRUGS (3)
  1. REBIF [Suspect]
     Active Substance: INTERFERON BETA-1A
     Indication: Multiple sclerosis
     Route: 058
     Dates: start: 20130623
  2. METFORMIN [Concomitant]
     Active Substance: METFORMIN HYDROCHLORIDE
     Indication: Diabetes mellitus
  3. ROGAINE [Concomitant]
     Active Substance: MINOXIDIL
     Indication: Alopecia

REACTIONS (13)
  - Pancytopenia [Unknown]
  - Bradycardia [Unknown]
  - Syncope [Unknown]
  - Intestinal polyp [Unknown]
  - Precancerous lesion of digestive tract [Unknown]
  - Intestinal obstruction [Unknown]
  - Spinal osteoarthritis [Unknown]
  - Intervertebral disc degeneration [Unknown]
  - Multiple sclerosis [Not Recovered/Not Resolved]
  - Somnolence [Unknown]
  - Osteoporosis [Unknown]
  - Fall [Unknown]
  - Pain [Recovering/Resolving]

NARRATIVE: CASE EVENT DATE: 20210709
